FAERS Safety Report 6546514-X (Version None)
Quarter: 2010Q1

REPORT INFORMATION
  Report Type: 
  Country: None (occurrence: None)
  Receive Date: 20100114
  Receipt Date: 20091104
  Transmission Date: 20100710
  Serious: No
  Sender: FDA-Public Use
  Company Number: 2009BM000299

PATIENT
  Age: 52 Year
  Sex: Female
  Weight: 77.1115 kg

DRUGS (6)
  1. KUVAN [Suspect]
     Indication: PHENYLKETONURIA
     Dosage: 1500 MG;HS;PO
     Route: 048
     Dates: start: 20090101, end: 20091001
  2. KUVAN [Suspect]
     Indication: PHENYLKETONURIA
     Dosage: 1500 MG;HS;PO
     Route: 048
     Dates: start: 20091001
  3. ROZEREM [Concomitant]
  4. VISTARIL [Concomitant]
  5. MULTI-VITAMINS [Concomitant]
  6. VITAMIN C [Concomitant]

REACTIONS (6)
  - BINGE EATING [None]
  - DYSPNOEA [None]
  - EATING DISORDER [None]
  - FATIGUE [None]
  - MALAISE [None]
  - SINUS CONGESTION [None]
